FAERS Safety Report 19313767 (Version 1)
Quarter: 2021Q2

REPORT INFORMATION
  Report Type: Report from Study
  Country: JP (occurrence: JP)
  Receive Date: 20210527
  Receipt Date: 20210527
  Transmission Date: 20210717
  Serious: Yes (Life-Threatening, Hospitalization)
  Sender: FDA-Public Use
  Company Number: PHJP2015JP017653

PATIENT
  Age: 71 Year
  Sex: Male
  Weight: 58.2 kg

DRUGS (26)
  1. LCZ696 [Suspect]
     Active Substance: SACUBITRIL\VALSARTAN
     Indication: CARDIAC FAILURE CHRONIC
     Dosage: 50 MG, BID
     Route: 048
     Dates: start: 20150820, end: 20150904
  2. AMIODARONE HYDROCHLORIDE. [Concomitant]
     Active Substance: AMIODARONE HYDROCHLORIDE
     Indication: VENTRICULAR TACHYCARDIA
     Dosage: 125 MG, QD
     Route: 048
     Dates: start: 20110730
  3. SILODOSIN. [Concomitant]
     Active Substance: SILODOSIN
     Indication: BENIGN PROSTATIC HYPERPLASIA
     Dosage: 4 MG, QD
     Route: 048
     Dates: start: 20140218
  4. ZOLAM//ALPRAZOLAM [Concomitant]
     Indication: NEUROSIS
     Dosage: 0.4 MG, BID
     Route: 048
     Dates: start: 20150828
  5. CARVEDILOL. [Concomitant]
     Active Substance: CARVEDILOL
     Indication: CARDIAC FAILURE
     Dosage: 10 MG, BID
     Route: 048
     Dates: start: 20140509
  6. AMIODARONE HYDROCHLORIDE. [Concomitant]
     Active Substance: AMIODARONE HYDROCHLORIDE
     Dosage: UNK
     Route: 048
  7. LANSOPRAZOLE. [Concomitant]
     Active Substance: LANSOPRAZOLE
     Indication: PROPHYLAXIS
     Dosage: 15 MG, QD
     Route: 048
     Dates: start: 20130405
  8. MICARDIS [Concomitant]
     Active Substance: TELMISARTAN
     Indication: HYPERTENSION
     Dosage: 20 MG, QD
     Route: 048
     Dates: start: 20151013
  9. ASPENON [Concomitant]
     Active Substance: APRINDINE HYDROCHLORIDE
     Indication: PRODUCT USED FOR UNKNOWN INDICATION
     Dosage: 40 MG, UNK
     Route: 065
     Dates: start: 201610
  10. ENTRESTO [Suspect]
     Active Substance: SACUBITRIL\VALSARTAN
     Indication: CARDIAC FAILURE CHRONIC
     Dosage: UNK
     Route: 048
     Dates: start: 20150905, end: 20151010
  11. AMIODARONE HYDROCHLORIDE. [Concomitant]
     Active Substance: AMIODARONE HYDROCHLORIDE
     Dosage: 200 MG, UNK
     Route: 048
  12. DUTASTERIDE. [Concomitant]
     Active Substance: DUTASTERIDE
     Indication: BENIGN PROSTATIC HYPERPLASIA
     Dosage: 0.25 MG, QD
     Route: 048
     Dates: start: 20150729
  13. DUTASTERIDE. [Concomitant]
     Active Substance: DUTASTERIDE
     Dosage: 0.5 MG, QD
     Route: 048
     Dates: start: 20161025
  14. CLOSTRIDIUM BUTYRICUM [Concomitant]
     Active Substance: CLOSTRIDIUM BUTYRICUM SPORES STRAIN M-55
     Indication: NASOPHARYNGITIS
     Dosage: 1 DF, TID
     Route: 048
     Dates: start: 20151218
  15. AMLODIPINE BESILATE [Concomitant]
     Active Substance: AMLODIPINE BESYLATE
     Indication: HYPERTENSION
     Dosage: 2.5 MG, QD
     Route: 048
     Dates: start: 20110812
  16. AMIODARONE HYDROCHLORIDE. [Concomitant]
     Active Substance: AMIODARONE HYDROCHLORIDE
     Dosage: 150 MG, UNK
     Route: 048
  17. MEXILETINE HYDROCHLORIDE. [Concomitant]
     Active Substance: MEXILETINE HYDROCHLORIDE
     Indication: VENTRICULAR TACHYCARDIA
     Dosage: 100 MG, BID
     Route: 048
     Dates: start: 20110730, end: 20160411
  18. BROTIZOLAM [Concomitant]
     Active Substance: BROTIZOLAM
     Indication: INSOMNIA
     Dosage: 0.25 MG, QD
     Route: 048
     Dates: start: 20130405
  19. IMIDAFENACIN [Concomitant]
     Active Substance: IMIDAFENACIN
     Indication: BENIGN PROSTATIC HYPERPLASIA
     Dosage: 0.2 MG, QD
     Route: 048
     Dates: start: 20150828
  20. LAFUTIDINE [Concomitant]
     Active Substance: LAFUTIDINE
     Indication: CHRONIC GASTRITIS
     Dosage: 10 MG, BID
     Route: 048
     Dates: start: 20151212
  21. TELMISARTAN. [Concomitant]
     Active Substance: TELMISARTAN
     Indication: HYPERTENSION
     Dosage: 20 MG, QD
     Route: 048
     Dates: start: 20161013
  22. AMIODARONE HYDROCHLORIDE. [Concomitant]
     Active Substance: AMIODARONE HYDROCHLORIDE
     Indication: ATRIAL FIBRILLATION
     Dosage: 150 MG, UNK
     Route: 048
     Dates: start: 20160912
  23. ROSUVASTATIN CALCIUM. [Concomitant]
     Active Substance: ROSUVASTATIN CALCIUM
     Indication: DYSLIPIDAEMIA
     Dosage: 5 MG, QD
     Route: 048
     Dates: start: 20150501
  24. DIMEMORFAN PHOSPHATE [Concomitant]
     Active Substance: DIMEMORFAN PHOSPHATE
     Indication: NASOPHARYNGITIS
     Dosage: 10 MG, TID
     Route: 048
     Dates: start: 20151218
  25. REBAMIPIDE [Concomitant]
     Active Substance: REBAMIPIDE
     Indication: CHRONIC GASTRITIS
     Dosage: 100 MG, BID
     Route: 048
     Dates: start: 20151212
  26. ASPENON [Concomitant]
     Active Substance: APRINDINE HYDROCHLORIDE
     Dosage: 60 MG, UNK
     Route: 065

REACTIONS (5)
  - Ventricular tachycardia [Recovered/Resolved]
  - Ventricular tachycardia [Recovered/Resolved]
  - Ventricular tachycardia [Recovered/Resolved]
  - Ventricular tachycardia [Recovered/Resolved]
  - Ventricular tachycardia [Recovered/Resolved]

NARRATIVE: CASE EVENT DATE: 20151010
